FAERS Safety Report 5048020-0 (Version None)
Quarter: 2006Q3

REPORT INFORMATION
  Report Type: 
  Country: None (occurrence: None)
  Receive Date: 20060711
  Receipt Date: 20060505
  Transmission Date: 20061208
  Serious: Yes (Death, Other)
  Sender: FDA-Public Use
  Company Number: PHFR2006GB01617

PATIENT
  Sex: Female

DRUGS (1)
  1. ZOMETA [Suspect]
     Indication: METASTASES TO BONE
     Dosage: 4 MG
     Route: 042

REACTIONS (4)
  - MALIGNANT NEOPLASM PROGRESSION [None]
  - MUSCLE MASS [None]
  - MYALGIA [None]
  - PAIN IN EXTREMITY [None]
